FAERS Safety Report 19073370 (Version 1)
Quarter: 2021Q1

REPORT INFORMATION
  Report Type: Spontaneous
  Country: AR (occurrence: AR)
  Receive Date: 20210330
  Receipt Date: 20210330
  Transmission Date: 20210420
  Serious: Yes (Other)
  Sender: FDA-Public Use
  Company Number: AR-PFIZER INC-2020325824

PATIENT
  Age: 58 Year
  Sex: Female

DRUGS (1)
  1. XELJANZ XR [Suspect]
     Active Substance: TOFACITINIB CITRATE
     Indication: RHEUMATOID ARTHRITIS
     Dosage: 11 MG, 1X/DAY
     Dates: start: 20190630

REACTIONS (9)
  - Joint swelling [Unknown]
  - Arthralgia [Unknown]
  - Osteoarthritis [Not Recovered/Not Resolved]
  - Chondropathy [Unknown]
  - Pain [Unknown]
  - Gait inability [Unknown]
  - COVID-19 [Unknown]
  - Abdominal discomfort [Unknown]
  - Gait disturbance [Unknown]

NARRATIVE: CASE EVENT DATE: 202011
